FAERS Safety Report 6804904-1 (Version None)
Quarter: 2010Q2

REPORT INFORMATION
  Report Type: 
  Country: None (occurrence: None)
  Receive Date: 20100628
  Receipt Date: 20070629
  Transmission Date: 20101027
  Serious: No
  Sender: FDA-Public Use
  Company Number: US-PFIZER INC-2007054282

PATIENT
  Sex: Male
  Weight: 125 kg

DRUGS (3)
  1. CADUET [Suspect]
     Indication: HYPERTENSION
     Dosage: 2.5/10MG
     Dates: start: 20070307, end: 20070628
  2. CADUET [Suspect]
     Indication: BLOOD CHOLESTEROL
  3. VALSARTAN [Concomitant]
     Dates: start: 20060101

REACTIONS (1)
  - OEDEMA PERIPHERAL [None]
